FAERS Safety Report 7323986-4 (Version None)
Quarter: 2011Q1

REPORT INFORMATION
  Report Type: 
  Country: None (occurrence: None)
  Receive Date: 20110301
  Receipt Date: 20110215
  Transmission Date: 20110831
  Serious: Yes (Hospitalization)
  Sender: FDA-Public Use
  Company Number: IT-PFIZER INC-2011041578

PATIENT
  Age: 2 Year
  Sex: Female

DRUGS (3)
  1. IBUPROFEN [Suspect]
     Indication: PYREXIA
  2. PARACETAMOL [Suspect]
  3. IBUPROFEN [Suspect]
     Indication: PHARYNGITIS

REACTIONS (4)
  - BLOOD BICARBONATE DECREASED [None]
  - RENAL TUBULAR ACIDOSIS [None]
  - DEHYDRATION [None]
  - OEDEMA [None]
